FAERS Safety Report 5300508-0 (Version None)
Quarter: 2007Q2

REPORT INFORMATION
  Report Type: 
  Country: None (occurrence: None)
  Receive Date: 20070418
  Receipt Date: 20070405
  Transmission Date: 20071010
  Serious: Yes (Other)
  Sender: FDA-Public Use
  Company Number: PHEH2007US04379

PATIENT
  Age: 51 Year
  Sex: Female

DRUGS (2)
  1. ZELNORM [Suspect]
     Indication: GASTRITIS
     Dosage: UNK, BID
     Dates: start: 20050101, end: 20070405
  2. ANTIHYPERTENSIVES [Concomitant]
     Indication: HYPERTENSION

REACTIONS (5)
  - DIZZINESS [None]
  - DYSPNOEA [None]
  - HYPERTENSION [None]
  - NEOPLASM [None]
  - SURGERY [None]
